FAERS Safety Report 26198236 (Version 2)
Quarter: 2025Q4

REPORT INFORMATION
  Report Type: Spontaneous
  Country: CN (occurrence: CN)
  Receive Date: 20251224
  Receipt Date: 20251230
  Transmission Date: 20260117
  Serious: Yes (Other)
  Sender: REGENERON
  Company Number: CN-BAYER-2025A166790

PATIENT
  Age: 65 Year
  Sex: Female

DRUGS (4)
  1. EYLEA [Suspect]
     Active Substance: AFLIBERCEPT
     Indication: Age-related macular degeneration
     Dosage: UNK, RIGHT EYE
     Route: 031
     Dates: start: 20251210
  2. UNSPECIFIED INGREDIENT [Concomitant]
     Active Substance: UNSPECIFIED INGREDIENT
     Indication: Anaesthesia
     Dosage: UNK
     Dates: start: 20251210, end: 20251210
  3. UNSPECIFIED INGREDIENT [Concomitant]
     Active Substance: UNSPECIFIED INGREDIENT
     Indication: Antiinflammatory therapy
     Dosage: UNK
     Dates: start: 20251210
  4. UNSPECIFIED INGREDIENT [Concomitant]
     Active Substance: UNSPECIFIED INGREDIENT
     Indication: Infection prophylaxis

REACTIONS (3)
  - Eye haemorrhage [Unknown]
  - Conjunctival hyperaemia [Unknown]
  - Vitrectomy [Unknown]

NARRATIVE: CASE EVENT DATE: 20251201
